FAERS Safety Report 8311793-5 (Version None)
Quarter: 2012Q2

REPORT INFORMATION
  Report Type: 
  Country: None (occurrence: None)
  Receive Date: 20120425
  Receipt Date: 20120423
  Transmission Date: 20120825
  Serious: Yes (Other)
  Sender: FDA-Public Use
  Company Number: PHHY2010FR092887

PATIENT
  Sex: Male
  Weight: 85 kg

DRUGS (3)
  1. ZOMETA [Suspect]
     Indication: METASTASES TO BONE
     Dosage: 4MG ONCE MONTHLY
     Dates: start: 20100218, end: 20101029
  2. TAXOTERE [Concomitant]
     Indication: METASTATIC NEOPLASM
     Dosage: 75 MG/M2, UNK
     Route: 042
     Dates: start: 20100302, end: 20100615
  3. PREDNISONE TAB [Concomitant]
     Dosage: 20MG 3 TIMES DAILY
     Route: 048
     Dates: start: 20100302, end: 20100615

REACTIONS (3)
  - PAIN [None]
  - OSTEONECROSIS OF JAW [None]
  - EXPOSED BONE IN JAW [None]
